FAERS Safety Report 14469384 (Version 2)
Quarter: 2018Q1

REPORT INFORMATION
  Report Type: Spontaneous
  Country: BR (occurrence: BR)
  Receive Date: 20180131
  Receipt Date: 20180202
  Transmission Date: 20180509
  Serious: Yes (Other)
  Sender: FDA-Public Use
  Company Number: BR-PFIZER INC-2015198072

PATIENT
  Age: 57 Year
  Sex: Male
  Weight: 72 kg

DRUGS (3)
  1. FRONTAL [Suspect]
     Active Substance: ALPRAZOLAM
     Dosage: UNK, 2X/DAY
     Route: 048
  2. FRONTAL [Suspect]
     Active Substance: ALPRAZOLAM
     Dosage: UNK
  3. FRONTAL [Suspect]
     Active Substance: ALPRAZOLAM
     Dosage: UNK, 3X/DAY
     Route: 048
     Dates: start: 2000

REACTIONS (8)
  - Dysentery [Unknown]
  - Feeling abnormal [Unknown]
  - Drug dependence [Unknown]
  - Anxiety [Unknown]
  - Intentional product misuse [Unknown]
  - Nightmare [Unknown]
  - Wrong technique in product usage process [Unknown]
  - Labyrinthitis [Unknown]
